FAERS Safety Report 14136678 (Version 5)
Quarter: 2018Q2

REPORT INFORMATION
  Report Type: Spontaneous
  Country: JP (occurrence: JP)
  Receive Date: 20171027
  Receipt Date: 20180622
  Transmission Date: 20180711
  Serious: Yes (Hospitalization, Other)
  Sender: FDA-Public Use
  Company Number: JP-ALLERGAN-1757675US

PATIENT
  Age: 56 Year
  Sex: Male

DRUGS (1)
  1. BOTOX [Suspect]
     Active Substance: ONABOTULINUMTOXINA
     Indication: MUSCLE SPASMS
     Dosage: 80 UNITS, SINGLE
     Route: 030
     Dates: start: 20170928, end: 20170928

REACTIONS (5)
  - Product administered at inappropriate site [Unknown]
  - Hemiplegia [Recovering/Resolving]
  - Ataxia [Recovering/Resolving]
  - Brain stem infarction [Recovered/Resolved with Sequelae]
  - Asthenia [Recovering/Resolving]

NARRATIVE: CASE EVENT DATE: 201709
